FAERS Safety Report 7988723 (Version 2)
Quarter: 2012Q4

REPORT INFORMATION
  Report Type: 
  Country: CA (occurrence: CA)
  Receive Date: 20110613
  Receipt Date: 20121107
  Transmission Date: 20130627
  Serious: Yes (Death)
  Sender: FDA-Public Use
  Company Number: PHMT2007CA01459

PATIENT
  Sex: Male

DRUGS (1)
  1. SANDOSTATIN LAR [Suspect]
     Indication: HEPATIC NEOPLASM MALIGNANT
     Dosage: 20 mg for every 4 weeks
     Route: 030
     Dates: start: 20060119, end: 20070524

REACTIONS (2)
  - Death [Fatal]
  - Abdominal pain [Unknown]
